FAERS Safety Report 5827951-5 (Version None)
Quarter: 2008Q3

REPORT INFORMATION
  Report Type: 
  Country: None (occurrence: None)
  Receive Date: 20080725
  Receipt Date: 20080714
  Transmission Date: 20090109
  Serious: Yes (Hospitalization)
  Sender: FDA-Public Use
  Company Number: 2008BI002345

PATIENT
  Age: 43 Year
  Sex: Female

DRUGS (1)
  1. TYSABRI [Suspect]
     Indication: MULTIPLE SCLEROSIS
     Dosage: 300 MG;QM;IV
     Route: 042
     Dates: start: 20070710, end: 20071211

REACTIONS (5)
  - GASTRIC ULCER [None]
  - OBSTRUCTION GASTRIC [None]
  - POST PROCEDURAL INFECTION [None]
  - STAPHYLOCOCCAL SEPSIS [None]
  - UPPER GASTROINTESTINAL HAEMORRHAGE [None]
